FAERS Safety Report 15332415 (Version 1)
Quarter: 2018Q3

REPORT INFORMATION
  Report Type: Spontaneous
  Country: US (occurrence: US)
  Receive Date: 20180829
  Receipt Date: 20180829
  Transmission Date: 20181010
  Serious: No
  Sender: FDA-Public Use
  Company Number: US-GLAXOSMITHKLINE-US2018GSK146324

PATIENT
  Age: 95 Year
  Sex: Female

DRUGS (1)
  1. BREO ELLIPTA [Suspect]
     Active Substance: FLUTICASONE FUROATE\VILANTEROL TRIFENATATE
     Indication: DYSPNOEA
     Dosage: UNK

REACTIONS (5)
  - Emphysema [Unknown]
  - Circumstance or information capable of leading to device use error [Unknown]
  - Drug dose omission [Unknown]
  - Chronic obstructive pulmonary disease [Unknown]
  - Wrong technique in device usage process [Unknown]
